FAERS Safety Report 19456957 (Version 1)
Quarter: 2021Q2

REPORT INFORMATION
  Report Type: Spontaneous
  Country: US (occurrence: US)
  Receive Date: 20210624
  Receipt Date: 20210624
  Transmission Date: 20210717
  Serious: Yes (Other)
  Sender: FDA-Public Use
  Company Number: US-TEVA-2021-US-1924565

PATIENT
  Sex: Female

DRUGS (1)
  1. METHOTREXATE. [Suspect]
     Active Substance: METHOTREXATE
     Indication: ABORTION INDUCED
     Dosage: RECEIVED METHOTREXATE AT 6 WEEKS OF GESTATION
     Route: 065

REACTIONS (3)
  - Induced abortion failed [Unknown]
  - Maternal exposure during pregnancy [Unknown]
  - Live birth [Unknown]
